FAERS Safety Report 20838634 (Version 1)
Quarter: 2022Q2

REPORT INFORMATION
  Report Type: Spontaneous
  Country: GR (occurrence: GR)
  Receive Date: 20220517
  Receipt Date: 20220517
  Transmission Date: 20220720
  Serious: Yes (Other)
  Sender: FDA-Public Use
  Company Number: GR-MYLANLABS-2022M1036369

PATIENT
  Age: 51 Year
  Sex: Female

DRUGS (16)
  1. EPIRUBICIN [Suspect]
     Active Substance: EPIRUBICIN
     Indication: Metastatic uterine cancer
     Dosage: UNK, CYCLE, 14 CYCLES
     Route: 065
  2. EPIRUBICIN [Suspect]
     Active Substance: EPIRUBICIN
     Indication: Smooth muscle cell neoplasm
  3. BEVACIZUMAB [Suspect]
     Active Substance: BEVACIZUMAB
     Indication: Metastatic uterine cancer
     Dosage: UNK, CYCLE, 14 CYCLES
     Route: 065
  4. BEVACIZUMAB [Suspect]
     Active Substance: BEVACIZUMAB
     Indication: Smooth muscle cell neoplasm
  5. IFOSFAMIDE [Suspect]
     Active Substance: IFOSFAMIDE
     Indication: Metastatic uterine cancer
     Dosage: UNK UNK, CYCLE, 14 CYCLES
     Route: 065
  6. IFOSFAMIDE [Suspect]
     Active Substance: IFOSFAMIDE
     Indication: Smooth muscle cell neoplasm
  7. DOCETAXEL [Suspect]
     Active Substance: DOCETAXEL
     Indication: Metastatic uterine cancer
     Dosage: UNK UNK, CYCLE, 14 CYCLES
     Route: 065
  8. DOCETAXEL [Suspect]
     Active Substance: DOCETAXEL
     Indication: Smooth muscle cell neoplasm
  9. GEMCITABINE [Suspect]
     Active Substance: GEMCITABINE
     Indication: Metastatic uterine cancer
     Dosage: UNK UNK, CYCLE, 14 CYCLES
     Route: 065
  10. GEMCITABINE [Suspect]
     Active Substance: GEMCITABINE
     Indication: Smooth muscle cell neoplasm
  11. CISPLATIN [Suspect]
     Active Substance: CISPLATIN
     Indication: Metastatic uterine cancer
     Dosage: UNK UNK, CYCLE,  14 CYCLES
     Route: 065
  12. CISPLATIN [Suspect]
     Active Substance: CISPLATIN
     Indication: Smooth muscle cell neoplasm
  13. CYCLOPHOSPHAMIDE [Suspect]
     Active Substance: CYCLOPHOSPHAMIDE
     Indication: Metastatic uterine cancer
     Dosage: UNK UNK, CYCLE, 14 CYCLES
     Route: 065
  14. CYCLOPHOSPHAMIDE [Suspect]
     Active Substance: CYCLOPHOSPHAMIDE
     Indication: Smooth muscle cell neoplasm
  15. VINCRISTINE [Suspect]
     Active Substance: VINCRISTINE
     Indication: Metastatic uterine cancer
     Dosage: UNK UNK, CYCLE, 14 CYCLES
     Route: 065
  16. VINCRISTINE [Suspect]
     Active Substance: VINCRISTINE
     Indication: Smooth muscle cell neoplasm

REACTIONS (1)
  - Drug ineffective [Unknown]
